FAERS Safety Report 8009444-2 (Version None)
Quarter: 2011Q4

REPORT INFORMATION
  Report Type: 
  Country: None (occurrence: None)
  Receive Date: 20111227
  Receipt Date: 20111220
  Transmission Date: 20120403
  Serious: Yes (Other)
  Sender: FDA-Public Use
  Company Number: US-ROCHE-784571

PATIENT
  Sex: Female
  Weight: 78.088 kg

DRUGS (1)
  1. ACCUTANE [Suspect]
     Indication: ACNE
     Route: 048
     Dates: start: 19960716, end: 19961104

REACTIONS (4)
  - EMOTIONAL DISTRESS [None]
  - CROHN'S DISEASE [None]
  - SHORT-BOWEL SYNDROME [None]
  - INFLAMMATORY BOWEL DISEASE [None]
